FAERS Safety Report 13386291 (Version 1)
Quarter: 2017Q1

REPORT INFORMATION
  Report Type: Spontaneous
  Country: FR (occurrence: FR)
  Receive Date: 20170330
  Receipt Date: 20170330
  Transmission Date: 20170429
  Serious: Yes (Hospitalization)
  Sender: FDA-Public Use
  Company Number: FR-ROCHE-1913817

PATIENT
  Age: 10 Year
  Sex: Female

DRUGS (3)
  1. XOLAIR [Suspect]
     Active Substance: OMALIZUMAB
     Indication: ASTHMA
     Dosage: 1 DF, QMO
     Route: 058
     Dates: start: 2015, end: 2016
  2. XOLAIR [Suspect]
     Active Substance: OMALIZUMAB
     Dosage: 0.5 DF, EVERY 15 DAYS
     Route: 058
     Dates: start: 2016
  3. XOLAIR [Suspect]
     Active Substance: OMALIZUMAB
     Dosage: 1 DF, QMO
     Route: 058
     Dates: start: 2016

REACTIONS (2)
  - Pyrexia [Recovered/Resolved]
  - Influenza like illness [Unknown]

NARRATIVE: CASE EVENT DATE: 2016
